FAERS Safety Report 5281461-5 (Version None)
Quarter: 2007Q1

REPORT INFORMATION
  Report Type: 
  Country: None (occurrence: None)
  Receive Date: 20070323
  Receipt Date: 20070323
  Transmission Date: 20070707
  Serious: Yes (Other)
  Sender: FDA-Public Use
  Company Number: None

PATIENT
  Age: 33 Year
  Sex: Female
  Weight: 68.0396 kg

DRUGS (2)
  1. DEPO-PROVERA [Suspect]
     Indication: CONTRACEPTION
     Dosage: 150 2 ID
     Route: 023
     Dates: start: 20050809, end: 20051109
  2. DEPO-PROVERA [Suspect]
     Dates: start: 20051109, end: 20060209

REACTIONS (2)
  - INFERTILITY [None]
  - PREMATURE MENOPAUSE [None]
